FAERS Safety Report 18667338 (Version 4)
Quarter: 2021Q3

REPORT INFORMATION
  Report Type: Spontaneous
  Country: US (occurrence: US)
  Receive Date: 20201228
  Receipt Date: 20210922
  Transmission Date: 20211014
  Serious: Yes (Death, Hospitalization, Other)
  Sender: FDA-Public Use
  Company Number: US-GLOBAL BLOOD THERAPEUTICS INC-US-GBT-20-04145

PATIENT
  Age: 36 Year
  Sex: Female

DRUGS (2)
  1. OXBRYTA [Suspect]
     Active Substance: VOXELOTOR
     Indication: SICKLE CELL DISEASE
     Route: 048
  2. FERRIPROX [Concomitant]
     Active Substance: DEFERIPRONE
     Indication: HAEMOCHROMATOSIS
     Dosage: NOT PROVIDED

REACTIONS (16)
  - Hepatic cirrhosis [Unknown]
  - Systemic infection [Fatal]
  - Myocardial infarction [Unknown]
  - Hand fracture [Unknown]
  - Haemoglobin decreased [Recovered/Resolved]
  - Product use complaint [Unknown]
  - Sickle cell disease [Fatal]
  - Gastrointestinal haemorrhage [Fatal]
  - Road traffic accident [Unknown]
  - Liver disorder [Not Recovered/Not Resolved]
  - Ascites [Fatal]
  - Renal failure [Fatal]
  - Hepatic fibrosis [Fatal]
  - Surgery [Unknown]
  - Pericardial effusion [Fatal]
  - Dialysis [Unknown]

NARRATIVE: CASE EVENT DATE: 20201212
